FAERS Safety Report 13538902 (Version 1)
Quarter: 2017Q2

REPORT INFORMATION
  Report Type: Spontaneous
  Country: US (occurrence: US)
  Receive Date: 20170511
  Receipt Date: 20170511
  Transmission Date: 20170830
  Serious: Yes (Death, Hospitalization)
  Sender: FDA-Public Use
  Company Number: None

PATIENT
  Age: 55 Year
  Sex: Female
  Weight: 63 kg

DRUGS (10)
  1. VANCOMYCIN HCL 1 GM, SODIUM CHL [Suspect]
     Active Substance: VANCOMYCIN HYDROCHLORIDE
     Indication: INFECTED SKIN ULCER
     Route: 042
     Dates: start: 20170310, end: 20170327
  2. NEURONTIN [Concomitant]
     Active Substance: GABAPENTIN
  3. ZANAFLEX [Concomitant]
     Active Substance: TIZANIDINE HYDROCHLORIDE
  4. PROZAC [Concomitant]
     Active Substance: FLUOXETINE HYDROCHLORIDE
  5. AMINOPYRIDINE [Concomitant]
     Active Substance: DALFAMPRIDINE
  6. TECFIDERA [Concomitant]
     Active Substance: DIMETHYL FUMARATE
  7. HIPREX [Concomitant]
     Active Substance: METHENAMINE HIPPURATE
  8. SANCTURA XR [Concomitant]
     Active Substance: TROSPIUM CHLORIDE
  9. VITAMIN D [Concomitant]
     Active Substance: CHOLECALCIFEROL
  10. VITAMIN C [Concomitant]
     Active Substance: ASCORBIC ACID

REACTIONS (3)
  - Pyrexia [None]
  - Rash [None]
  - Swelling [None]

NARRATIVE: CASE EVENT DATE: 20170327
